FAERS Safety Report 9490710 (Version 1)
Quarter: 2013Q3

REPORT INFORMATION
  Report Type: Spontaneous
  Country: PK (occurrence: None)
  Receive Date: 20130826
  Receipt Date: 20130826
  Transmission Date: 20140515
  Serious: Yes (Hospitalization)
  Sender: FDA-Public Use
  Company Number: SYM-2013-08980

PATIENT
  Sex: 0

DRUGS (1)
  1. FLAGYL [Suspect]

REACTIONS (2)
  - Encephalopathy [None]
  - Toxicity to various agents [None]
